FAERS Safety Report 13103377 (Version 1)
Quarter: 2017Q1

REPORT INFORMATION
  Report Type: Spontaneous
  Country: US (occurrence: US)
  Receive Date: 20170110
  Receipt Date: 20170110
  Transmission Date: 20170428
  Serious: No
  Sender: FDA-Public Use
  Company Number: US-NOVEL LABORATORIES, INC-E2B_00006867

PATIENT
  Sex: Female
  Weight: 63.56 kg

DRUGS (1)
  1. DEXTROAMPHETAMINE. [Suspect]
     Active Substance: DEXTROAMPHETAMINE
     Indication: ATTENTION DEFICIT/HYPERACTIVITY DISORDER
     Route: 048

REACTIONS (2)
  - Product formulation issue [Unknown]
  - Drug ineffective [Unknown]
